FAERS Safety Report 14602881 (Version 1)
Quarter: 2018Q1

REPORT INFORMATION
  Report Type: Spontaneous
  Country: US (occurrence: US)
  Receive Date: 20180304
  Receipt Date: 20180304
  Transmission Date: 20180509
  Serious: Yes (Hospitalization)
  Sender: FDA-Public Use
  Company Number: None

PATIENT
  Age: 62 Year
  Sex: Female
  Weight: 73.4 kg

DRUGS (3)
  1. CYCLOPHOSPHAMIDE. [Suspect]
     Active Substance: CYCLOPHOSPHAMIDE
     Dates: end: 20180130
  2. TAXOL [Suspect]
     Active Substance: PACLITAXEL
     Dates: end: 20180220
  3. DOXORUBICIN HYDROCHLORIDE. [Suspect]
     Active Substance: DOXORUBICIN HYDROCHLORIDE
     Dates: end: 20180130

REACTIONS (7)
  - Aspartate aminotransferase increased [None]
  - Mitral valve incompetence [None]
  - Burning sensation [None]
  - Hyperhidrosis [None]
  - Vomiting [None]
  - Pallor [None]
  - Abdominal pain [None]

NARRATIVE: CASE EVENT DATE: 20180224
